FAERS Safety Report 26157251 (Version 1)
Quarter: 2025Q4

REPORT INFORMATION
  Report Type: Spontaneous
  Country: US (occurrence: US)
  Receive Date: 20251215
  Receipt Date: 20251215
  Transmission Date: 20260118
  Serious: Yes (Other)
  Sender: DAIICHI
  Company Number: US-DSJP-DS-2025-182930-US

PATIENT
  Age: 88 Year
  Sex: Female

DRUGS (1)
  1. SAVAYSA [Suspect]
     Active Substance: EDOXABAN TOSYLATE
     Indication: Arrhythmia
     Dosage: UNK
     Route: 065

REACTIONS (5)
  - Myocardial infarction [Unknown]
  - Arrhythmia [Unknown]
  - Cardiomegaly [Unknown]
  - Stress cardiomyopathy [Unknown]
  - Stress [Unknown]

NARRATIVE: CASE EVENT DATE: 20240101
